FAERS Safety Report 6758955-6 (Version None)
Quarter: 2010Q2

REPORT INFORMATION
  Report Type: 
  Country: None (occurrence: None)
  Receive Date: 20100607
  Receipt Date: 20100603
  Transmission Date: 20101027
  Serious: Yes (Hospitalization)
  Sender: FDA-Public Use
  Company Number: FR-BRISTOL-MYERS SQUIBB COMPANY-15111149

PATIENT
  Age: 47 Year
  Sex: Male

DRUGS (2)
  1. SPRYCEL [Suspect]
  2. DEPAKOTE [Concomitant]
     Dates: start: 20100519

REACTIONS (1)
  - BIPOLAR I DISORDER [None]
